FAERS Safety Report 14714030 (Version 2)
Quarter: 2018Q2

REPORT INFORMATION
  Report Type: Report from Study
  Country: NL (occurrence: NL)
  Receive Date: 20180404
  Receipt Date: 20180420
  Transmission Date: 20180711
  Serious: Yes (Other)
  Sender: FDA-Public Use
  Company Number: NL-AMGEN-NLDSL2018043045

PATIENT
  Age: 45 Year
  Sex: Female

DRUGS (2)
  1. XGEVA [Suspect]
     Active Substance: DENOSUMAB
     Indication: PROPHYLAXIS
     Dosage: 120 MG, (1.7 ML),Q2WK
     Route: 058
  2. XGEVA [Suspect]
     Active Substance: DENOSUMAB
     Dosage: UNK
     Route: 058

REACTIONS (6)
  - Arthralgia [Recovering/Resolving]
  - Off label use [Unknown]
  - Back pain [Recovering/Resolving]
  - Musculoskeletal chest pain [Recovering/Resolving]
  - Chest pain [Recovering/Resolving]
  - Erdheim-Chester disease [Unknown]

NARRATIVE: CASE EVENT DATE: 20180408
